FAERS Safety Report 6636071-1 (Version None)
Quarter: 2010Q1

REPORT INFORMATION
  Report Type: 
  Country: None (occurrence: None)
  Receive Date: 20100310
  Receipt Date: 20100302
  Transmission Date: 20100710
  Serious: Yes (Hospitalization)
  Sender: FDA-Public Use
  Company Number: 2010PL000024

PATIENT
  Age: 21 Year
  Sex: Female

DRUGS (1)
  1. AZATHIOPRINE [Suspect]
     Indication: COLITIS ULCERATIVE
     Dosage: 2.5 MG/KG;QD

REACTIONS (12)
  - CHOLECYSTITIS [None]
  - COLD AGGLUTININS POSITIVE [None]
  - GALLBLADDER DISORDER [None]
  - HAEMOLYTIC ANAEMIA [None]
  - HEPATITIS CHOLESTATIC [None]
  - INFECTIOUS MONONUCLEOSIS [None]
  - LUNG INFILTRATION [None]
  - PLEURAL EFFUSION [None]
  - PNEUMONIA [None]
  - SEPTIC SHOCK [None]
  - SPLENOMEGALY [None]
  - TACHYCARDIA [None]
